FAERS Safety Report 5575905-9 (Version None)
Quarter: 2007Q4

REPORT INFORMATION
  Report Type: 
  Country: None (occurrence: None)
  Receive Date: 20071130
  Receipt Date: 20070904
  Transmission Date: 20080405
  Serious: No
  Sender: FDA-Public Use
  Company Number: US200708000448

PATIENT
  Age: 53 Year
  Sex: Female
  Weight: 90.7 kg

DRUGS (24)
  1. BYETTA [Suspect]
     Indication: TYPE 2 DIABETES MELLITUS
     Dosage: 5 UG, 2/D, SUBCUTANEOUS ; 10 UG, 2/D, SUBCUTANEOUS
     Route: 058
     Dates: start: 20070401, end: 20070601
  2. BYETTA [Suspect]
     Indication: TYPE 2 DIABETES MELLITUS
     Dosage: 5 UG, 2/D, SUBCUTANEOUS ; 10 UG, 2/D, SUBCUTANEOUS
     Route: 058
     Dates: start: 20070601
  3. GLUCOPHAGE [Concomitant]
  4. PRAVACHOL [Concomitant]
  5. ZETIA [Concomitant]
  6. NEXIUM [Concomitant]
  7. FLEXERIL [Concomitant]
  8. PROVENTIL /00139501/ (SALBUTAMOL) [Concomitant]
  9. FLOVENT [Concomitant]
  10. ALL OTHER THERAPEUTIC PRODUCTS [Concomitant]
  11. MIDRIN (DICHLORALPHENAZONE, ISOMETHEPTENE, PARACETAMOL) [Concomitant]
  12. NEURONTIN [Concomitant]
  13. OMEGA-3 FATTY ACIDS (OMEGA-3 FATTY ACIDS) [Concomitant]
  14. MOTRIN [Concomitant]
  15. LISINOPRIL [Concomitant]
  16. CLARINEX [Concomitant]
  17. NASONEX [Concomitant]
  18. CLINDAMYCIN (CLINDAMYCIN) [Concomitant]
  19. CO-Q10 (UBIDECARENONE) [Concomitant]
  20. ALPHA LIPOIC ACID (THIOCTIC ACID) [Concomitant]
  21. SOY ISOFLAVONES (GLYCINE MAX EXTRACT) [Concomitant]
  22. ASCORBIC ACID [Concomitant]
  23. CALCIUM W/VITAMIN D /00944201/ (CALCIUM CARBONATE, COLECALCIFEROL) [Concomitant]
  24. ENTEX LA (GUAIFENESIN, PHENYLEPHRINE HYDROCHLORIDE) [Concomitant]

REACTIONS (11)
  - ABDOMINAL PAIN UPPER [None]
  - BLOOD GLUCOSE DECREASED [None]
  - BLOOD GLUCOSE INCREASED [None]
  - CONSTIPATION [None]
  - DECREASED APPETITE [None]
  - FLATULENCE [None]
  - MENOPAUSE [None]
  - MYALGIA [None]
  - MYOSITIS [None]
  - PALPITATIONS [None]
  - WEIGHT DECREASED [None]
